FAERS Safety Report 5749982-6 (Version None)
Quarter: 2008Q2

REPORT INFORMATION
  Report Type: 
  Country: None (occurrence: None)
  Receive Date: 20080527
  Receipt Date: 20080514
  Transmission Date: 20081010
  Serious: Yes (Other)
  Sender: FDA-Public Use
  Company Number: US-ELI_LILLY_AND_COMPANY-US200805003425

PATIENT
  Age: 68 Year
  Sex: Female

DRUGS (2)
  1. EVISTA [Suspect]
     Indication: OSTEOPENIA
     Dosage: UNK, UNK
  2. EVISTA [Suspect]
     Dosage: 60 MG, UNK
     Dates: start: 19970101

REACTIONS (4)
  - CHEST DISCOMFORT [None]
  - FALL [None]
  - HEPATIC MASS [None]
  - SPINAL FRACTURE [None]
